FAERS Safety Report 19285747 (Version 4)
Quarter: 2021Q3

REPORT INFORMATION
  Report Type: Report from Study
  Country: JP (occurrence: JP)
  Receive Date: 20210521
  Receipt Date: 20210719
  Transmission Date: 20211014
  Serious: Yes (Hospitalization)
  Sender: FDA-Public Use
  Company Number: NVSC2021JP113135

PATIENT
  Age: 72 Year
  Sex: Male

DRUGS (26)
  1. LANSOPRAZOLE. [Concomitant]
     Active Substance: LANSOPRAZOLE
     Indication: GASTROINTESTINAL DISORDER PROPHYLAXIS
     Dosage: UNK
     Route: 065
     Dates: start: 20210519
  2. BETAMETHASONE SODIUM PHOSPHATE [Concomitant]
     Active Substance: BETAMETHASONE SODIUM PHOSPHATE
     Indication: PROPHYLAXIS
     Dosage: UNK
     Route: 065
     Dates: start: 20210521
  3. REBAMIPIDE [Concomitant]
     Active Substance: REBAMIPIDE
     Indication: PROPHYLAXIS
     Dosage: UNK
     Route: 065
     Dates: start: 20210301
  4. LEVOFLOXACIN. [Concomitant]
     Active Substance: LEVOFLOXACIN
     Indication: INFECTION PROPHYLAXIS
     Dosage: UNK
     Route: 065
     Dates: start: 20210519, end: 20210526
  5. BROMFENAC NA [Concomitant]
     Indication: INFECTION PROPHYLAXIS
     Dosage: UNK
     Route: 065
     Dates: start: 20210521
  6. ALPHAGAN P [Concomitant]
     Active Substance: BRIMONIDINE TARTRATE
     Indication: GLAUCOMA
     Dosage: UNK
     Route: 065
     Dates: start: 20201111
  7. BEOVU [Suspect]
     Active Substance: BROLUCIZUMAB-DBLL
     Indication: RETINAL VEIN OCCLUSION
     Dosage: UNK
     Route: 031
     Dates: start: 20200303, end: 20210518
  8. TRIAMCINOLONE ACETONIDE. [Concomitant]
     Active Substance: TRIAMCINOLONE ACETONIDE
     Indication: VITRITIS
     Dosage: UNK
     Route: 065
     Dates: start: 20210518, end: 20210518
  9. ASPARA [Concomitant]
     Active Substance: CALCIUM ASPARTATE
     Indication: PRODUCT USED FOR UNKNOWN INDICATION
     Dosage: UNK
     Route: 065
     Dates: start: 20210520, end: 20210520
  10. MOHRUS [Concomitant]
     Active Substance: KETOPROFEN
     Indication: SPONDYLOLISTHESIS
     Dosage: 120 MG
     Route: 065
     Dates: start: 20050101
  11. LOXOPROFEN SODIUM [Concomitant]
     Active Substance: LOXOPROFEN SODIUM
     Indication: SPONDYLOLISTHESIS
     Dosage: 100 MG
     Route: 065
     Dates: start: 20050101
  12. BIMATOPROST. [Concomitant]
     Active Substance: BIMATOPROST
     Indication: GLAUCOMA
     Dosage: UNK
     Route: 065
     Dates: start: 20201111
  13. CELECOXIB. [Concomitant]
     Active Substance: CELECOXIB
     Indication: ARTHRALGIA
     Dosage: UNK
     Route: 065
     Dates: start: 20210301
  14. OPALMON [Concomitant]
     Active Substance: LIMAPROST
     Indication: SPONDYLOLISTHESIS
     Dosage: UNK
     Route: 065
     Dates: start: 20050101
  15. PILOCARPINE. [Concomitant]
     Active Substance: PILOCARPINE
     Indication: GLAUCOMA
     Dosage: UNK
     Route: 065
     Dates: start: 20210521
  16. CARBAZOCHROME SODIUM SULFONATE [Concomitant]
     Active Substance: CARBAZOCHROME SODIUM SULFONATE
     Indication: RETINAL VEIN OCCLUSION
     Dosage: 30 MG
     Route: 065
     Dates: start: 20200205
  17. FLUMETHOLON [Concomitant]
     Active Substance: FLUOROMETHOLONE
     Indication: PROPHYLAXIS
     Dosage: UNK
     Route: 065
     Dates: start: 20210518
  18. GLANATEC [Concomitant]
     Active Substance: RIPASUDIL HYDROCHLORIDE DIHYDRATE
     Indication: GLAUCOMA
     Dosage: UNK
     Route: 065
     Dates: start: 20210519, end: 20210519
  19. SEIROGAN [Concomitant]
     Indication: PROPHYLAXIS
     Dosage: UNK
     Route: 065
     Dates: start: 19900101
  20. DIQUAS [Concomitant]
     Active Substance: DIQUAFOSOL TETRASODIUM
     Indication: OCULAR DISCOMFORT
     Dosage: UNK
     Route: 065
     Dates: start: 20201111
  21. PREDNISOLONE. [Concomitant]
     Active Substance: PREDNISOLONE
     Indication: VITRITIS
     Dosage: UNK
     Route: 065
     Dates: start: 20210519
  22. CEFCAPENE PIVOXIL HYDROCHLORIDE [Concomitant]
     Active Substance: CEFCAPENE PIVOXIL HYDROCHLORIDE
     Indication: INFECTION PROPHYLAXIS
     Dosage: UNK
     Route: 065
     Dates: start: 20210521, end: 20210525
  23. LANSOPRAZOLE. [Concomitant]
     Active Substance: LANSOPRAZOLE
     Dosage: UNK
     Route: 065
     Dates: start: 20210519
  24. KALLIDINOGENASE [Concomitant]
     Active Substance: KALLIDINOGENASE
     Indication: RETINAL VEIN OCCLUSION
     Dosage: 50 UNITS
     Route: 065
     Dates: start: 20200205
  25. ACETAZOLAMIDE. [Concomitant]
     Active Substance: ACETAZOLAMIDE
     Indication: GLAUCOMA
     Dosage: UNK
     Route: 065
     Dates: start: 20210520, end: 20210520
  26. BETAMETHASONE SODIUM PHOSPHATE [Concomitant]
     Active Substance: BETAMETHASONE SODIUM PHOSPHATE
     Indication: VITRITIS
     Dosage: UNK
     Route: 065
     Dates: start: 20210518

REACTIONS (1)
  - Retinal vascular occlusion [Not Recovered/Not Resolved]

NARRATIVE: CASE EVENT DATE: 20210518
